FAERS Safety Report 5239132-7 (Version None)
Quarter: 2007Q1

REPORT INFORMATION
  Report Type: 
  Country: None (occurrence: None)
  Receive Date: 20070212
  Receipt Date: 20070125
  Transmission Date: 20070707
  Serious: Yes (Disabling)
  Sender: FDA-Public Use
  Company Number: 2007EU000238

PATIENT
  Sex: Female

DRUGS (5)
  1. PROGRAF [Suspect]
     Indication: RENAL TRANSPLANT
     Dosage: 2 MG,/D, TRANSPLACENTAL
     Route: 064
  2. CELLCEPT [Suspect]
     Indication: RENAL TRANSPLANT
     Dosage: 1 DF, UNKNOWN/D, TRANSPLACENTAL
     Route: 064
  3. PREDNISONE TAB [Suspect]
     Indication: RENAL TRANSPLANT
     Dosage: 4 MG, UNKNOWN/D, TRANSPLACENTAL
     Route: 064
  4. ACEBUTOLOL [Suspect]
     Indication: RENAL TRANSPLANT
     Dosage: 600 MG, UNKNOWN/D, TRANSPLACENTAL
     Route: 064
  5. OROCAL VITAMIN D (COLECALCIFEROL, CALCIUM CARBONATE) [Suspect]
     Dosage: 2 DF, UNKNOWN/D, TRANSPLACENTAL
     Route: 064

REACTIONS (5)
  - CONGENITAL RENAL CYST [None]
  - DRUG EXPOSURE DURING PREGNANCY [None]
  - EAR MALFORMATION [None]
  - EXTERNAL AUDITORY CANAL ATRESIA [None]
  - SMALL FOR DATES BABY [None]
